FAERS Safety Report 21572913 (Version 3)
Quarter: 2022Q4

REPORT INFORMATION
  Report Type: Spontaneous
  Country: AR (occurrence: AR)
  Receive Date: 20221109
  Receipt Date: 20221221
  Transmission Date: 20230113
  Serious: Yes (Hospitalization, Other)
  Sender: FDA-Public Use
  Company Number: AR-PFIZER INC-PV202200095671

PATIENT
  Age: 74 Year
  Sex: Female

DRUGS (2)
  1. IBRANCE [Suspect]
     Active Substance: PALBOCICLIB
     Indication: Breast cancer metastatic
     Dosage: 100 MG, CYCLIC (DAILY, SCHEME 3X1)
     Dates: start: 20170815
  2. LETROZOLE [Concomitant]
     Active Substance: LETROZOLE
     Dosage: UNK

REACTIONS (6)
  - Arthropathy [Not Recovered/Not Resolved]
  - Gait inability [Not Recovered/Not Resolved]
  - Hip surgery [Unknown]
  - Pyrexia [Unknown]
  - Off label use [Unknown]
  - Pharyngitis [Unknown]

NARRATIVE: CASE EVENT DATE: 20170815
